FAERS Safety Report 6532190-9 (Version None)
Quarter: 2010Q1

REPORT INFORMATION
  Report Type: 
  Country: None (occurrence: None)
  Receive Date: 20100107
  Receipt Date: 20100107
  Transmission Date: 20100710
  Serious: No
  Sender: FDA-Public Use
  Company Number: None

PATIENT
  Age: 52 Year
  Sex: Female
  Weight: 75.2971 kg

DRUGS (2)
  1. PROPOFOL [Suspect]
     Indication: COLONOSCOPY
     Dosage: 200MG IV BOLUS
     Route: 040
     Dates: start: 20091229, end: 20091229
  2. PROPOFOL [Suspect]
     Indication: SEDATIVE THERAPY
     Dosage: 200MG IV BOLUS
     Route: 040
     Dates: start: 20091229, end: 20091229

REACTIONS (6)
  - BLOOD PRESSURE INCREASED [None]
  - HEADACHE [None]
  - HEART RATE INCREASED [None]
  - MUSCLE RIGIDITY [None]
  - POSTURING [None]
  - TENSION [None]
